FAERS Safety Report 20166763 (Version 2)
Quarter: 2022Q1

REPORT INFORMATION
  Report Type: Spontaneous
  Country: CO (occurrence: CO)
  Receive Date: 20211209
  Receipt Date: 20220110
  Transmission Date: 20220423
  Serious: Yes (Hospitalization, Other)
  Sender: FDA-Public Use
  Company Number: CO-MLMSERVICE-20211126-3147483-1

PATIENT
  Age: 39 Year
  Sex: Female

DRUGS (8)
  1. METHYLPREDNISOLONE [Suspect]
     Active Substance: METHYLPREDNISOLONE
     Indication: Immunosuppressant drug therapy
     Dosage: PULSE
  2. METHYLPREDNISOLONE [Suspect]
     Active Substance: METHYLPREDNISOLONE
     Dosage: UNK
     Dates: start: 201410
  3. PREDNISOLONE [Suspect]
     Active Substance: PREDNISOLONE
     Indication: Immunosuppressant drug therapy
     Dosage: 5 MG, 1X/DAY
     Dates: start: 201410
  4. BASILIXIMAB [Suspect]
     Active Substance: BASILIXIMAB
     Indication: Immunosuppressant drug therapy
     Dosage: UNK
     Dates: start: 201410
  5. EVEROLIMUS [Suspect]
     Active Substance: EVEROLIMUS
     Indication: Immunosuppressant drug therapy
     Dosage: EVEROLIMUS 1
     Dates: start: 201410
  6. TACROLIMUS [Suspect]
     Active Substance: TACROLIMUS
     Indication: Immunosuppressant drug therapy
     Dosage: EXTENDED RELEASE TACROLIMUS XL
     Dates: start: 2014
  7. TACROLIMUS [Suspect]
     Active Substance: TACROLIMUS
     Dosage: EXTENDED RELEASE TACROLIMUS XL
     Dates: start: 2016
  8. TACROLIMUS [Suspect]
     Active Substance: TACROLIMUS
     Dosage: EXTENDED RELEASE TACROLIMUS XL
     Dates: start: 2016

REACTIONS (4)
  - Polyomavirus-associated nephropathy [Recovering/Resolving]
  - Chronic kidney disease [Recovering/Resolving]
  - Renal impairment [Recovering/Resolving]
  - Tubulointerstitial nephritis [Recovering/Resolving]

NARRATIVE: CASE EVENT DATE: 20160101
